FAERS Safety Report 6903583-2 (Version None)
Quarter: 2010Q3

REPORT INFORMATION
  Report Type: 
  Country: None (occurrence: None)
  Receive Date: 20100803
  Receipt Date: 20081028
  Transmission Date: 20110219
  Serious: No
  Sender: FDA-Public Use
  Company Number: US-PFIZER INC-2008092014

PATIENT
  Sex: Male

DRUGS (7)
  1. LYRICA [Suspect]
     Indication: NEURALGIA
     Route: 048
  2. CELEBREX [Concomitant]
  3. ACIPHEX [Concomitant]
  4. LEXAPRO [Concomitant]
  5. LUNESTA [Concomitant]
  6. ASTELIN [Concomitant]
  7. QVAR 40 [Concomitant]

REACTIONS (1)
  - WEIGHT INCREASED [None]
